FAERS Safety Report 18925019 (Version 1)
Quarter: 2021Q1

REPORT INFORMATION
  Report Type: Spontaneous
  Country: US (occurrence: US)
  Receive Date: 20210223
  Receipt Date: 20210223
  Transmission Date: 20210420
  Serious: Yes (Other)
  Sender: FDA-Public Use
  Company Number: US-HETERO-HET2021US00212

PATIENT
  Age: 30 Year
  Sex: Female

DRUGS (3)
  1. TESTOSTERONE CIPIONATE [Concomitant]
     Active Substance: TESTOSTERONE
     Indication: VIRILISM
     Dosage: 100 MG, QW
     Route: 065
  2. FINASTERIDE. [Suspect]
     Active Substance: FINASTERIDE
     Indication: HIDRADENITIS
     Dosage: UNK
     Route: 065
  3. TESTOSTERONE CIPIONATE [Concomitant]
     Active Substance: TESTOSTERONE
     Dosage: 140 MG, QW
     Route: 065

REACTIONS (1)
  - Depression [Unknown]
